FAERS Safety Report 15470084 (Version 1)
Quarter: 2018Q4

REPORT INFORMATION
  Report Type: Spontaneous
  Country: JP (occurrence: JP)
  Receive Date: 20181005
  Receipt Date: 20181005
  Transmission Date: 20190205
  Serious: Yes (Hospitalization)
  Sender: FDA-Public Use
  Company Number: JP-MYLANLABS-2018M1072893

PATIENT
  Age: 10 Year
  Sex: Male

DRUGS (3)
  1. ATOMOXETINE. [Concomitant]
     Active Substance: ATOMOXETINE HYDROCHLORIDE
     Indication: ATTENTION DEFICIT/HYPERACTIVITY DISORDER
     Dosage: 5MG IN THE MORNING AND 10MG AT NIGHT (FROM THE AGE OF 9 YEARS AND 1 MONTH)
     Route: 065
  2. ATOMOXETINE. [Concomitant]
     Active Substance: ATOMOXETINE HYDROCHLORIDE
     Dosage: 10MG IN THE MORNING AND 15MG AT NIGHT (FROM THE AGE OF 9 YEARS AND 2 MONTHS)
     Route: 065
  3. METHYLPHENIDATE. [Suspect]
     Active Substance: METHYLPHENIDATE
     Indication: ATTENTION DEFICIT/HYPERACTIVITY DISORDER
     Dosage: NO DRUG HOLIDAYS
     Route: 065

REACTIONS (1)
  - Cerebral haemorrhage [Recovering/Resolving]
